FAERS Safety Report 11288558 (Version 1)
Quarter: 2015Q3

REPORT INFORMATION
  Report Type: Report from Study
  Country: BR (occurrence: BR)
  Receive Date: 20150721
  Receipt Date: 20150721
  Transmission Date: 20151125
  Serious: Yes (Other)
  Sender: FDA-Public Use
  Company Number: PHHY2015BR083721

PATIENT
  Sex: Female
  Weight: 47 kg

DRUGS (1)
  1. ACLASTA [Suspect]
     Active Substance: ZOLEDRONIC ACID
     Indication: OSTEOPOROSIS
     Dosage: 1 DF (1 APPLICATION/YEAR)
     Route: 065
     Dates: start: 201405

REACTIONS (3)
  - Rib fracture [Recovered/Resolved]
  - Fall [Unknown]
  - Spinal fracture [Recovered/Resolved]
